FAERS Safety Report 7985881-7 (Version None)
Quarter: 2011Q4

REPORT INFORMATION
  Report Type: 
  Country: None (occurrence: None)
  Receive Date: 20111216
  Receipt Date: 20111207
  Transmission Date: 20120403
  Serious: Yes (Hospitalization)
  Sender: FDA-Public Use
  Company Number: US-BAYER-2011-081959

PATIENT
  Age: 34 Year
  Sex: Female
  Weight: 73 kg

DRUGS (3)
  1. ALDACTONE [Concomitant]
     Indication: ALOPECIA
     Dosage: UNK
     Dates: start: 20020101, end: 20050101
  2. NSAID'S [Concomitant]
     Indication: PAIN
  3. YASMIN [Suspect]
     Indication: CONTRACEPTION
     Dosage: UNK
     Dates: start: 20020201, end: 20031101

REACTIONS (7)
  - GALLBLADDER DISORDER [None]
  - ABDOMINAL PAIN [None]
  - INJURY [None]
  - PAIN [None]
  - ANXIETY [None]
  - ANHEDONIA [None]
  - PSYCHOLOGICAL TRAUMA [None]
